FAERS Safety Report 7988525-3 (Version None)
Quarter: 2011Q4

REPORT INFORMATION
  Report Type: 
  Country: None (occurrence: None)
  Receive Date: 20111218
  Receipt Date: 20111214
  Transmission Date: 20120403
  Serious: Yes (Other)
  Sender: FDA-Public Use
  Company Number: US-VERTEX PHARMACEUTICALS INC.-AE-2011-002367

PATIENT
  Sex: Male
  Weight: 102.15 kg

DRUGS (7)
  1. INCIVEK [Suspect]
     Indication: HEPATITIS C
     Route: 048
     Dates: start: 20111004
  2. INTERFERON [Concomitant]
     Indication: HEPATITIS C
     Dates: start: 20111004
  3. MILK THISTLE [Concomitant]
     Route: 048
  4. TRAMADOL HCL [Concomitant]
     Route: 048
  5. TETRACYCLINE HYDROCHLORIDE [Concomitant]
     Route: 048
  6. RIBAVIRIN [Concomitant]
     Indication: HEPATITIS C
     Route: 048
     Dates: start: 20111004
  7. VITAMIN E [Concomitant]
     Route: 048

REACTIONS (15)
  - INAPPROPRIATE SCHEDULE OF DRUG ADMINISTRATION [None]
  - BLISTER [None]
  - HEART RATE INCREASED [None]
  - FEELING ABNORMAL [None]
  - ANXIETY [None]
  - DEPRESSION [None]
  - CONSTIPATION [None]
  - PANCYTOPENIA [None]
  - INSOMNIA [None]
  - RASH [None]
  - ORAL FUNGAL INFECTION [None]
  - DRUG DOSE OMISSION [None]
  - ASTHENIA [None]
  - DIZZINESS [None]
  - DYSPNOEA [None]
